FAERS Safety Report 24867088 (Version 1)
Quarter: 2025Q1

REPORT INFORMATION
  Report Type: Spontaneous
  Country: US (occurrence: US)
  Receive Date: 20250121
  Receipt Date: 20250121
  Transmission Date: 20250409
  Serious: No
  Sender: SUNOVION
  Company Number: US-SUMITOMO PHARMA SWITZERLAND GMBH-2025SPA000095

PATIENT

DRUGS (3)
  1. GEMTESA [Suspect]
     Active Substance: VIBEGRON
     Route: 048
  2. GEMTESA [Suspect]
     Active Substance: VIBEGRON
     Route: 048
  3. OXYBUTYNIN [Suspect]
     Active Substance: OXYBUTYNIN
     Route: 065

REACTIONS (5)
  - Automatic bladder [Unknown]
  - Urethral spasm [Unknown]
  - Adverse drug reaction [Unknown]
  - Drug ineffective [Unknown]
  - Inappropriate schedule of product administration [Unknown]
